FAERS Safety Report 20449393 (Version 1)
Quarter: 2022Q1

REPORT INFORMATION
  Report Type: Spontaneous
  Country: US (occurrence: US)
  Receive Date: 20220209
  Receipt Date: 20220209
  Transmission Date: 20220423
  Serious: No
  Sender: FDA-Public Use
  Company Number: US-TEVA-2022-US-2004783

PATIENT
  Age: 84 Year
  Sex: Female

DRUGS (1)
  1. ATENOLOL [Suspect]
     Active Substance: ATENOLOL
     Dosage: 100 MILLIGRAM DAILY; IN THE MORNING AND IN THE EVENING
     Route: 065

REACTIONS (5)
  - Lethargy [Unknown]
  - Nausea [Unknown]
  - Dyspnoea [Unknown]
  - Motion sickness [Unknown]
  - Gait disturbance [Unknown]
